FAERS Safety Report 4445010-3 (Version None)
Quarter: 2004Q3

REPORT INFORMATION
  Report Type: 
  Country: None (occurrence: None)
  Receive Date: 20040907
  Receipt Date: 20040825
  Transmission Date: 20050211
  Serious: Yes (Hospitalization)
  Sender: FDA-Public Use
  Company Number: 2004060662

PATIENT
  Age: 67 Year
  Sex: Female

DRUGS (2)
  1. CITALOR (ATORVASTATIN) [Suspect]
     Indication: DYSLIPIDAEMIA
     Dosage: 5 MG (1 IN 1 D), ORAL
     Route: 048
     Dates: start: 20010801
  2. DILTIAZEM HYDROCHLORIDE [Concomitant]

REACTIONS (1)
  - ANGINA PECTORIS [None]
